FAERS Safety Report 4599830-5 (Version None)
Quarter: 2005Q1

REPORT INFORMATION
  Report Type: 
  Country: None (occurrence: None)
  Receive Date: 20050304
  Receipt Date: 20050304
  Transmission Date: 20050727
  Serious: Yes (Other)
  Sender: FDA-Public Use
  Company Number: None

PATIENT
  Sex: Female
  Weight: 51.4833 kg

DRUGS (1)
  1. LOESTRIN FE 1/20 [Suspect]
     Indication: ENDOMETRIOSIS

REACTIONS (1)
  - HOT FLUSH [None]
